FAERS Safety Report 5487284-6 (Version None)
Quarter: 2007Q4

REPORT INFORMATION
  Report Type: 
  Country: None (occurrence: None)
  Receive Date: 20071015
  Receipt Date: 20071002
  Transmission Date: 20080405
  Serious: Yes (Other)
  Sender: FDA-Public Use
  Company Number: GXKR2007US08519

PATIENT
  Age: 23 Year
  Sex: Female

DRUGS (2)
  1. PHENDIMETRAZINE (NGX)(PHENDIMETRAZINE) UNKNOWN [Suspect]
  2. EPHEDRINE SUL CAP [Concomitant]

REACTIONS (14)
  - ABNORMAL BEHAVIOUR [None]
  - AGITATION [None]
  - ATTENTION DEFICIT/HYPERACTIVITY DISORDER [None]
  - CONVULSION [None]
  - DYSSOMNIA [None]
  - ILL-DEFINED DISORDER [None]
  - MENTAL DISORDER [None]
  - MENTAL STATUS CHANGES [None]
  - MINI MENTAL STATUS EXAMINATION ABNORMAL [None]
  - NERVOUS SYSTEM DISORDER [None]
  - NEUROLOGICAL EXAMINATION ABNORMAL [None]
  - PSYCHOMOTOR HYPERACTIVITY [None]
  - RETROGRADE AMNESIA [None]
  - SPEECH DISORDER [None]
